FAERS Safety Report 7562935-0 (Version None)
Quarter: 2011Q2

REPORT INFORMATION
  Report Type: 
  Country: None (occurrence: None)
  Receive Date: 20110615
  Receipt Date: 20110601
  Transmission Date: 20111010
  Serious: Yes (Other)
  Sender: FDA-Public Use
  Company Number: AUR-APL-2011-02314

PATIENT
  Sex: Female
  Weight: 45.3597 kg

DRUGS (1)
  1. SIMVASTATIN [Suspect]

REACTIONS (1)
  - PRURITUS [None]
